FAERS Safety Report 13961904 (Version 2)
Quarter: 2017Q4

REPORT INFORMATION
  Report Type: Report from Study
  Country: IN (occurrence: IN)
  Receive Date: 20170912
  Receipt Date: 20171006
  Transmission Date: 20180320
  Serious: Yes (Hospitalization, Other)
  Sender: FDA-Public Use
  Company Number: IN-BAUSCH-BL-2017-027033

PATIENT
  Sex: Male
  Weight: 50 kg

DRUGS (6)
  1. PEGYLATED INTERFERON ALFA 2A [Suspect]
     Active Substance: PEGINTERFERON ALFA-2A
     Route: 058
     Dates: start: 201410
  2. PEGYLATED INTERFERON ALFA 2A [Suspect]
     Active Substance: PEGINTERFERON ALFA-2A
     Indication: HEPATITIS C
     Dosage: DOSE OF 135 MICROG/DOSE EVERY WEEK
     Route: 058
     Dates: start: 20140825, end: 20141013
  3. RIBAVIRIN. [Suspect]
     Active Substance: RIBAVIRIN
     Dosage: RESTARTED AFTER 2 WEEKS OF DISCONTINUATION
     Route: 048
     Dates: start: 201410
  4. RIBAVIRIN. [Suspect]
     Active Substance: RIBAVIRIN
     Indication: HEPATITIS C
     Route: 048
     Dates: start: 20140825, end: 20141013
  5. PEGYLATED INTERFERON ALFA 2B [Suspect]
     Active Substance: PEGINTERFERON ALFA-2B
     Indication: HEPATITIS C
     Dosage: 50 MICROG/DOSE EVERY WEEK
     Route: 058
     Dates: start: 20140825, end: 20141013
  6. PEGYLATED INTERFERON ALFA 2B [Suspect]
     Active Substance: PEGINTERFERON ALFA-2B
     Route: 058
     Dates: start: 201410

REACTIONS (3)
  - Pneumonia [Recovered/Resolved]
  - Hepatitis C [Recovered/Resolved]
  - Drug ineffective [Recovered/Resolved]

NARRATIVE: CASE EVENT DATE: 20141013
